FAERS Safety Report 8609696-1 (Version None)
Quarter: 2012Q3

REPORT INFORMATION
  Report Type: 
  Country: None (occurrence: None)
  Receive Date: 20120821
  Receipt Date: 20120817
  Transmission Date: 20120928
  Serious: Yes (Other)
  Sender: FDA-Public Use
  Company Number: US-JNJFOC-20120809419

PATIENT
  Sex: Male

DRUGS (4)
  1. LIPITOR [Concomitant]
  2. XARELTO [Suspect]
     Indication: ATRIAL FIBRILLATION
     Route: 048
  3. XARELTO [Suspect]
     Indication: CEREBROVASCULAR ACCIDENT PROPHYLAXIS
     Route: 048
  4. NIACIN [Concomitant]

REACTIONS (2)
  - SURGERY [None]
  - HEPATIC ENZYME INCREASED [None]
